FAERS Safety Report 7478559-X (Version None)
Quarter: 2011Q2

REPORT INFORMATION
  Report Type: 
  Country: None (occurrence: None)
  Receive Date: 20110513
  Receipt Date: 20110505
  Transmission Date: 20111010
  Serious: Yes (Other)
  Sender: FDA-Public Use
  Company Number: US-PFIZER INC-2011098734

PATIENT
  Sex: Female
  Weight: 104.31 kg

DRUGS (4)
  1. XANAX [Suspect]
     Indication: ANXIETY
     Dosage: 1 MG, 3X/DAY
     Route: 048
  2. ZOLOFT [Suspect]
     Indication: DEPRESSION
     Dosage: UNK
     Route: 048
     Dates: end: 19950101
  3. EFFEXOR [Suspect]
     Indication: DEPRESSION
     Dosage: UNK
     Route: 048
     Dates: end: 19950101
  4. WELLBUTRIN [Suspect]
     Indication: DEPRESSION
     Dosage: UNK
     Dates: end: 19950101

REACTIONS (5)
  - INTERVERTEBRAL DISC DEGENERATION [None]
  - MUSCULOSKELETAL DISORDER [None]
  - HYPERSENSITIVITY [None]
  - BACK PAIN [None]
  - SUICIDAL IDEATION [None]
